FAERS Safety Report 6647082-4 (Version None)
Quarter: 2010Q1

REPORT INFORMATION
  Report Type: 
  Country: None (occurrence: None)
  Receive Date: 20100323
  Receipt Date: 20100315
  Transmission Date: 20100710
  Serious: Yes (Hospitalization, Other)
  Sender: FDA-Public Use
  Company Number: US-BAYER-200911698BCC

PATIENT
  Age: 51 Year
  Sex: Female

DRUGS (11)
  1. ASPIRIN [Suspect]
     Indication: INTRACRANIAL ANEURYSM
     Dates: end: 20090401
  2. REBIF [Suspect]
     Indication: SECONDARY PROGRESSIVE MULTIPLE SCLEROSIS
     Route: 058
     Dates: start: 20090316, end: 20090101
  3. REBIF [Suspect]
     Route: 058
     Dates: start: 20090101, end: 20090101
  4. REBIF [Suspect]
     Route: 058
     Dates: start: 20100101
  5. REBIF [Suspect]
     Route: 065
     Dates: start: 20090216, end: 20090316
  6. PLAVIX [Suspect]
     Indication: INTRACRANIAL ANEURYSM
  7. CORTICOSTEROIDS [Concomitant]
     Indication: VISUAL IMPAIRMENT
  8. VITAMINS [Concomitant]
     Indication: DRUG USE FOR UNKNOWN INDICATION
  9. MECLIZINE [Concomitant]
     Indication: DIZZINESS
  10. LEVAQUIN [Concomitant]
     Indication: URINARY TRACT INFECTION
     Dates: start: 20090401, end: 20090101
  11. OXYBUTYNIN [Concomitant]
     Indication: DRUG USE FOR UNKNOWN INDICATION
     Route: 065
     Dates: start: 20090101

REACTIONS (6)
  - CEREBROVASCULAR ACCIDENT [None]
  - GASTROINTESTINAL HAEMORRHAGE [None]
  - HAEMATOCHEZIA [None]
  - HAEMORRHOIDAL HAEMORRHAGE [None]
  - INTRACRANIAL PRESSURE INCREASED [None]
  - URINARY TRACT INFECTION [None]
